FAERS Safety Report 6116193-4 (Version None)
Quarter: 2009Q1

REPORT INFORMATION
  Report Type: 
  Country: None (occurrence: None)
  Receive Date: 20090314
  Receipt Date: 20081202
  Transmission Date: 20090719
  Serious: Yes (Other)
  Sender: FDA-Public Use
  Company Number: US-ABBOTT-08P-163-0490679-00

PATIENT
  Sex: Male
  Weight: 74.91 kg

DRUGS (3)
  1. HUMIRA [Suspect]
     Indication: CROHN'S DISEASE
     Route: 058
     Dates: start: 20080607, end: 20081001
  2. MERCAPTOPURINE [Concomitant]
     Indication: CROHN'S DISEASE
     Route: 048
  3. PREDNISONE [Concomitant]
     Indication: CROHN'S DISEASE
     Route: 048

REACTIONS (1)
  - SQUAMOUS CELL CARCINOMA [None]
